FAERS Safety Report 11501819 (Version 1)
Quarter: 2015Q3

REPORT INFORMATION
  Report Type: Spontaneous
  Country: US (occurrence: US)
  Receive Date: 20150914
  Receipt Date: 20150914
  Transmission Date: 20151125
  Serious: Yes (Other)
  Sender: FDA-Public Use
  Company Number: US-TAKEDA-TPA2012A03641

PATIENT

DRUGS (9)
  1. ACTOS [Suspect]
     Active Substance: PIOGLITAZONE HYDROCHLORIDE
     Dosage: UNK
     Route: 048
     Dates: start: 20100915
  2. DIABETA                            /00145301/ [Concomitant]
     Dosage: UNK
     Dates: start: 1996, end: 2007
  3. ACTOS [Suspect]
     Active Substance: PIOGLITAZONE HYDROCHLORIDE
     Indication: TYPE 2 DIABETES MELLITUS
     Dosage: 30 MG, WITH 8 REFILLS; UNK
     Route: 048
     Dates: start: 20090914
  4. ACTOS [Suspect]
     Active Substance: PIOGLITAZONE HYDROCHLORIDE
     Dosage: 15 MG, UNK
     Route: 048
     Dates: start: 20120419
  5. JANUVIA [Concomitant]
     Active Substance: SITAGLIPTIN PHOSPHATE
     Dosage: UNK
     Dates: start: 2011
  6. ACTOS [Suspect]
     Active Substance: PIOGLITAZONE HYDROCHLORIDE
     Dosage: 15 UNK, WITH 6 REFILLS; UNK
     Route: 048
     Dates: start: 20110609
  7. AVANDIA [Concomitant]
     Active Substance: ROSIGLITAZONE MALEATE
     Dosage: UNK
     Dates: start: 2005, end: 2007
  8. GLUCOTROL [Concomitant]
     Active Substance: GLIPIZIDE
     Dosage: UNK
     Dates: start: 2008, end: 2012
  9. METFORMIN [Concomitant]
     Active Substance: METFORMIN HYDROCHLORIDE
     Dosage: UNK
     Dates: start: 1997, end: 2010

REACTIONS (10)
  - Bladder transitional cell carcinoma stage II [Unknown]
  - Dysuria [Unknown]
  - Abdominal pain lower [Unknown]
  - Decreased appetite [Unknown]
  - Back pain [Unknown]
  - Micturition urgency [Unknown]
  - Gastrointestinal disorder [Unknown]
  - Weight decreased [Unknown]
  - Blood urine present [Unknown]
  - Pollakiuria [Unknown]

NARRATIVE: CASE EVENT DATE: 20101123
